FAERS Safety Report 5662543-2 (Version None)
Quarter: 2008Q1

REPORT INFORMATION
  Report Type: 
  Country: None (occurrence: None)
  Receive Date: 20080313
  Receipt Date: 20080307
  Transmission Date: 20080703
  Serious: Yes (Other)
  Sender: FDA-Public Use
  Company Number: GB-BRISTOL-MYERS SQUIBB COMPANY-14112353

PATIENT
  Age: 77 Year
  Sex: Female

DRUGS (1)
  1. GLUCOPHAGE [Suspect]
     Dosage: 1500MG IN THE MORNING AND 1000MG IN THE EVENING
     Dates: end: 20071201

REACTIONS (1)
  - RENAL IMPAIRMENT [None]
